FAERS Safety Report 8122534-9 (Version None)
Quarter: 2012Q1

REPORT INFORMATION
  Report Type: 
  Country: None (occurrence: None)
  Receive Date: 20120208
  Receipt Date: 20120130
  Transmission Date: 20120608
  Serious: Yes (Death, Hospitalization)
  Sender: FDA-Public Use
  Company Number: TW-BAXTER-2012BH000529

PATIENT

DRUGS (4)
  1. EXTRANEAL [Suspect]
     Indication: PERITONEAL DIALYSIS
     Route: 033
     Dates: start: 20091101
  2. EXTRANEAL [Suspect]
     Route: 033
     Dates: start: 20091101
  3. DIANEAL [Suspect]
     Route: 033
     Dates: start: 20091101
  4. DIANEAL [Suspect]
     Indication: PERITONEAL DIALYSIS
     Route: 033
     Dates: start: 20091101

REACTIONS (2)
  - GASTRIC ULCER [None]
  - CARDIOVASCULAR DISORDER [None]
